FAERS Safety Report 6107047-8 (Version None)
Quarter: 2009Q1

REPORT INFORMATION
  Report Type: 
  Country: None (occurrence: None)
  Receive Date: 20090305
  Receipt Date: 20090305
  Transmission Date: 20090719
  Serious: No
  Sender: FDA-Public Use
  Company Number: None

PATIENT
  Sex: Male
  Weight: 85.7298 kg

DRUGS (1)
  1. LOVASTATIN [Suspect]
     Indication: HYPERLIPIDAEMIA
     Dates: start: 20070601, end: 20090201

REACTIONS (2)
  - ARTHRALGIA [None]
  - MUSCLE SPASMS [None]
